FAERS Safety Report 24440946 (Version 2)
Quarter: 2024Q4

REPORT INFORMATION
  Report Type: Spontaneous
  Country: FR (occurrence: FR)
  Receive Date: 20241016
  Receipt Date: 20241108
  Transmission Date: 20250115
  Serious: Yes (Other)
  Sender: ROCHE
  Company Number: FR-ROCHE-10000102866

PATIENT
  Age: 86 Year
  Sex: Female

DRUGS (1)
  1. GLOFITAMAB [Suspect]
     Active Substance: GLOFITAMAB
     Indication: Product used for unknown indication
     Route: 065

REACTIONS (1)
  - Disseminated tuberculosis [Unknown]
